FAERS Safety Report 4552994-1 (Version None)
Quarter: 2005Q1

REPORT INFORMATION
  Report Type: 
  Country: None (occurrence: None)
  Receive Date: 20050112
  Receipt Date: 20050112
  Transmission Date: 20050727
  Serious: No
  Sender: FDA-Public Use
  Company Number: None

PATIENT
  Age: 81 Year
  Sex: Female
  Weight: 57.1532 kg

DRUGS (1)
  1. WARFARIN SODIUM [Suspect]
     Dosage: 6MG FRI + SAT 4 MG (ILLEGIBLE)
     Route: 048
     Dates: start: 20041111, end: 20041214

REACTIONS (3)
  - HALITOSIS [None]
  - HYPERHIDROSIS [None]
  - NAUSEA [None]
